FAERS Safety Report 6520085-6 (Version None)
Quarter: 2009Q4

REPORT INFORMATION
  Report Type: 
  Country: None (occurrence: None)
  Receive Date: 20091229
  Receipt Date: 20091217
  Transmission Date: 20100525
  Serious: Yes (Hospitalization)
  Sender: FDA-Public Use
  Company Number: PHHY2009FR56916

PATIENT
  Age: 17 Year
  Sex: Female

DRUGS (5)
  1. LAMISIL [Suspect]
     Dosage: 250 MG, UNK
  2. LAMOTRIGINE [Suspect]
     Dosage: 50 MG, NO TREATMENT
     Dates: start: 20091106, end: 20091114
  3. IBUPROFEN [Concomitant]
     Indication: MUSCLE STRAIN
     Dosage: 2-3 DF
     Dates: start: 20091001, end: 20091114
  4. AMOXICILLIN [Concomitant]
     Indication: PHARYNGITIS
     Dosage: 2 DF, DAILY
     Dates: start: 20091106, end: 20091113
  5. PEVARYL [Concomitant]
     Indication: FUNGAL INFECTION
     Dosage: 1-2 APPLICATION DAILY
     Dates: start: 20091106, end: 20091114

REACTIONS (8)
  - DRUG DISPENSING ERROR [None]
  - PAIN [None]
  - PRURITUS [None]
  - PYREXIA [None]
  - RASH [None]
  - RASH ERYTHEMATOUS [None]
  - RASH MORBILLIFORM [None]
  - RASH PRURITIC [None]
